FAERS Safety Report 9447625 (Version 3)
Quarter: 2014Q1

REPORT INFORMATION
  Report Type: Spontaneous
  Country: US (occurrence: US)
  Receive Date: 20130808
  Receipt Date: 20140225
  Transmission Date: 20141002
  Serious: Yes (Death, Congenital Anomaly)
  Sender: FDA-Public Use
  Company Number: US-JNJFOC-20130802256

PATIENT
  Sex: 0

DRUGS (4)
  1. DARUNAVIR [Suspect]
     Indication: PRODUCT USED FOR UNKNOWN INDICATION
     Route: 064
  2. ETRAVIRINE [Suspect]
     Indication: PRODUCT USED FOR UNKNOWN INDICATION
     Route: 064
  3. RALTEGRAVIR [Suspect]
     Indication: PRODUCT USED FOR UNKNOWN INDICATION
     Route: 064
  4. RITONAVIR [Suspect]
     Indication: PRODUCT USED FOR UNKNOWN INDICATION
     Route: 064

REACTIONS (3)
  - Thrombosis [Fatal]
  - Gastrointestinal disorder congenital [Fatal]
  - Foetal exposure during pregnancy [Recovered/Resolved]
